FAERS Safety Report 6645776-8 (Version None)
Quarter: 2010Q1

REPORT INFORMATION
  Report Type: 
  Country: None (occurrence: None)
  Receive Date: 20100318
  Receipt Date: 20100318
  Transmission Date: 20100710
  Serious: Yes (Hospitalization)
  Sender: FDA-Public Use
  Company Number: None

PATIENT
  Sex: Female
  Weight: 86.1834 kg

DRUGS (2)
  1. PEGASYS [Suspect]
     Indication: HEPATITIS C
     Dosage: 180 MCG/0.5 ML ONCE A WEEK SQ
     Route: 058
     Dates: start: 20100115, end: 20100317
  2. RIBAVIRIN [Suspect]
     Indication: HEPATITIS C
     Dosage: 400 MG BID PO
     Route: 048
     Dates: start: 20100115, end: 20100317

REACTIONS (4)
  - DIARRHOEA [None]
  - FEELING ABNORMAL [None]
  - VOMITING [None]
  - WEIGHT DECREASED [None]
